FAERS Safety Report 24539128 (Version 1)
Quarter: 2024Q4

REPORT INFORMATION
  Report Type: Spontaneous
  Country: US (occurrence: US)
  Receive Date: 20241023
  Receipt Date: 20241023
  Transmission Date: 20250114
  Serious: Yes (Hospitalization, Other)
  Sender: AMGEN
  Company Number: US-AMGEN-USACT2024199154

PATIENT
  Age: 69 Year
  Sex: Female

DRUGS (16)
  1. KYPROLIS [Suspect]
     Active Substance: CARFILZOMIB
     Indication: Chemotherapy
     Dosage: UNK UNK, QD (FIRST DOSE)
     Route: 065
     Dates: start: 20240809, end: 20240809
  2. KYPROLIS [Suspect]
     Active Substance: CARFILZOMIB
     Dosage: UNK UNK, QD (SECOND DOSE)
     Route: 065
     Dates: start: 20240816, end: 20240816
  3. IBERDOMIDE [Suspect]
     Active Substance: IBERDOMIDE
     Indication: Plasma cell myeloma
     Dosage: 1 MILLIGRAM, QD
     Route: 048
     Dates: start: 20240229, end: 20240229
  4. IBERDOMIDE [Suspect]
     Active Substance: IBERDOMIDE
     Dosage: 0.6 MILLIGRAM, QD
     Route: 048
     Dates: start: 20240718, end: 20240801
  5. PANTOPRAZOLE [Concomitant]
     Active Substance: PANTOPRAZOLE
     Indication: Dyspepsia
     Dosage: 20 MILLIGRAM, QD
     Route: 048
     Dates: start: 202311
  6. CITALOPRAM [Concomitant]
     Active Substance: CITALOPRAM
     Indication: Depression
     Dosage: 40 MILLIGRAM, QD
     Route: 048
     Dates: start: 20080615
  7. WELLBUTRIN [Concomitant]
     Active Substance: BUPROPION HYDROCHLORIDE
     Indication: Depression
     Dosage: 150 MILLIGRAM, QD
     Route: 048
     Dates: start: 20080615
  8. MIRALAX [Concomitant]
     Active Substance: POLYETHYLENE GLYCOL 3350
     Indication: Constipation
     Dosage: 17 MILLIGRAM, QD
     Route: 048
     Dates: start: 20220201
  9. CHOLECALCIFEROL [Concomitant]
     Active Substance: CHOLECALCIFEROL
     Indication: Product used for unknown indication
     Dosage: 2000 UNIT, BID
     Route: 048
     Dates: start: 20220415
  10. CALCIUM CARBONATE [Concomitant]
     Active Substance: CALCIUM CARBONATE
     Indication: Prophylaxis
     Dosage: UNK UNK, TID
     Route: 048
     Dates: start: 20230523
  11. ASPIRIN [Concomitant]
     Active Substance: ASPIRIN
     Indication: Prophylaxis
     Dosage: 81 MILLIGRAM, QD
     Route: 048
     Dates: start: 20240216
  12. ZARXIO [Concomitant]
     Active Substance: FILGRASTIM-SNDZ
     Indication: Neutropenia
     Dosage: 380 MILLIGRAM, QD
     Route: 042
     Dates: start: 20240411
  13. SODIUM CHLORIDE [Concomitant]
     Active Substance: SODIUM CHLORIDE
     Indication: Dehydration
     Dosage: 500- 1000 MILLILITER, QD
     Route: 042
     Dates: start: 20240809
  14. FENTANYL [Concomitant]
     Active Substance: FENTANYL
     Indication: Chest pain
     Dosage: 1000 MILLILITER, QD
     Route: 042
     Dates: start: 20240816, end: 20240817
  15. ONDANSETRON [Concomitant]
     Active Substance: ONDANSETRON
     Indication: Nausea
     Dosage: 4 MILLIGRAM, QD
     Route: 042
     Dates: start: 20240816, end: 20240816
  16. ZOMETA [Concomitant]
     Active Substance: ZOLEDRONIC ACID
     Indication: Prophylaxis
     Dosage: 0.117 MILLIGRAM, Q4WK
     Route: 042
     Dates: start: 20230626

REACTIONS (2)
  - Syncope [Recovered/Resolved]
  - Dyspnoea [Recovered/Resolved]

NARRATIVE: CASE EVENT DATE: 20240816
